FAERS Safety Report 17925163 (Version 1)
Quarter: 2020Q2

REPORT INFORMATION
  Report Type: Spontaneous
  Country: US (occurrence: US)
  Receive Date: 20200622
  Receipt Date: 20200622
  Transmission Date: 20200714
  Serious: Yes (Hospitalization)
  Sender: FDA-Public Use
  Company Number: US-VERTEX PHARMACEUTICALS-2020-013258

PATIENT
  Sex: Male
  Weight: 61 kg

DRUGS (9)
  1. ALBUTEROL SULFATE HFA [Concomitant]
     Active Substance: ALBUTEROL SULFATE
  2. ALBUTEROL SULFATE. [Concomitant]
     Active Substance: ALBUTEROL SULFATE
  3. HYPERSAL [Concomitant]
     Active Substance: SODIUM CHLORIDE
     Dosage: VIAL-NEB
  4. PULMOZYME [Concomitant]
     Active Substance: DORNASE ALFA
  5. ISOTRETINOIN. [Concomitant]
     Active Substance: ISOTRETINOIN
  6. TRIKAFTA [Suspect]
     Active Substance: ELEXACAFTOR\IVACAFTOR\TEZACAFTOR
     Indication: CYSTIC FIBROSIS
     Dosage: 2 TABLETS 100 MG ELEXACAFTOR/ 50 MG TEZACAFTOR/ 75 MG IVACAFTOR AM 1 TABLET 150MG IVACAFTOR PM
     Route: 048
     Dates: start: 20200125
  7. ZENPEP [Concomitant]
     Active Substance: PANCRELIPASE AMYLASE\PANCRELIPASE LIPASE\PANCRELIPASE PROTEASE
     Dosage: 10-32-42K
  8. VITAMIN D [COLECALCIFEROL] [Concomitant]
     Active Substance: CHOLECALCIFEROL
     Dosage: VITAMIN D-400
  9. AZITHROMYCIN ANHYDROUS. [Concomitant]
     Active Substance: AZITHROMYCIN ANHYDROUS

REACTIONS (1)
  - Infection [Unknown]

NARRATIVE: CASE EVENT DATE: 2020
